FAERS Safety Report 20723557 (Version 3)
Quarter: 2022Q2

REPORT INFORMATION
  Report Type: Other
  Country: US (occurrence: None)
  Receive Date: 20220419
  Receipt Date: 20220527
  Transmission Date: 20220721
  Serious: Yes (Hospitalization)
  Sender: FDA-Public Use
  Company Number: US-ROCHE-3072221

PATIENT
  Age: 51 Year
  Sex: Female

DRUGS (18)
  1. OCRELIZUMAB [Suspect]
     Active Substance: OCRELIZUMAB
     Indication: Multiple sclerosis
     Dosage: SECOND DOSE IN TWO WEEKS, THEN EVERY 6 NOS.?FIRST ADMINISTRATION
     Route: 042
     Dates: start: 20201228
  2. OCRELIZUMAB [Suspect]
     Active Substance: OCRELIZUMAB
     Route: 042
     Dates: start: 20210118
  3. AMITRIPTYLINE [Concomitant]
     Active Substance: AMITRIPTYLINE
     Dates: start: 2008
  4. TOPIRAMATE [Concomitant]
     Active Substance: TOPIRAMATE
     Indication: Prophylaxis
     Dates: start: 20130509
  5. INSULIN NOS [Concomitant]
     Active Substance: INSULIN NOS
     Dates: start: 1985
  6. ATORVASTATIN [Concomitant]
     Active Substance: ATORVASTATIN
     Dates: start: 20110906, end: 20210923
  7. ASPIRIN [Concomitant]
     Active Substance: ASPIRIN
     Dates: start: 2008
  8. MINOCYCLINE [Concomitant]
     Active Substance: MINOCYCLINE HYDROCHLORIDE
     Indication: Prophylaxis
     Dates: start: 2013
  9. GALCANEZUMAB-GNLM [Concomitant]
     Active Substance: GALCANEZUMAB-GNLM
     Indication: Prophylaxis
     Dates: start: 201909
  10. GLUCAGON [Concomitant]
     Active Substance: GLUCAGON
     Dates: start: 201911
  11. IBUPROFEN [Concomitant]
     Active Substance: IBUPROFEN
     Dates: start: 20200205
  12. LANTUS [Concomitant]
     Active Substance: INSULIN GLARGINE
     Indication: Adverse event
     Dates: start: 20210822
  13. HUMALOG [Concomitant]
     Active Substance: INSULIN LISPRO
     Indication: Adverse event
     Dates: start: 20210822
  14. LEVOFLOXACIN [Concomitant]
     Active Substance: LEVOFLOXACIN
     Indication: Adverse event
     Dates: start: 20220318, end: 20220321
  15. LEVAQUIN [Concomitant]
     Active Substance: LEVOFLOXACIN
     Indication: Adverse event
     Dates: start: 20220322, end: 20220405
  16. PREDNISONE [Concomitant]
     Active Substance: PREDNISONE
     Indication: Adverse event
     Dates: start: 20220321, end: 20220323
  17. OMEPRAZOLE [Concomitant]
     Active Substance: OMEPRAZOLE
     Dates: start: 20211117
  18. ROSUVASTATIN CALCIUM [Concomitant]
     Active Substance: ROSUVASTATIN CALCIUM
     Dates: start: 20210924

REACTIONS (1)
  - Sepsis [Recovered/Resolved]

NARRATIVE: CASE EVENT DATE: 20211223
